FAERS Safety Report 17735417 (Version 1)
Quarter: 2020Q2

REPORT INFORMATION
  Report Type: Other
  Country: US (occurrence: US)
  Receive Date: 20200501
  Receipt Date: 20200501
  Transmission Date: 20200714
  Serious: Yes (Life-Threatening, Hospitalization)
  Sender: FDA-Public Use
  Company Number: US-VITRUVIAS THERAPEUTICS-2083420

PATIENT
  Age: 11 Month
  Sex: Female
  Weight: 8.5 kg

DRUGS (1)
  1. LIDOCAINE. [Suspect]
     Active Substance: LIDOCAINE

REACTIONS (1)
  - Status epilepticus [Recovered/Resolved]
